FAERS Safety Report 4780099-3 (Version None)
Quarter: 2005Q3

REPORT INFORMATION
  Report Type: 
  Country: None (occurrence: None)
  Receive Date: 20050914
  Receipt Date: 20050427
  Transmission Date: 20060218
  Serious: Yes (Hospitalization)
  Sender: FDA-Public Use
  Company Number: 163-20785-03070106

PATIENT
  Age: 72 Year
  Sex: Male
  Weight: 70 kg

DRUGS (24)
  1. THALOMID [Suspect]
     Indication: MULTIPLE MYELOMA
     Dosage: 100 MG, DAILY, ORAL; 400 MG, DAILY, ORAL; 200 MG, DAILY, ORAL; QD, ORAL; 100 MG, QD, PO; 100 MG, QHS
     Route: 048
     Dates: start: 20021024, end: 20021028
  2. THALOMID [Suspect]
     Indication: MULTIPLE MYELOMA
     Dosage: 100 MG, DAILY, ORAL; 400 MG, DAILY, ORAL; 200 MG, DAILY, ORAL; QD, ORAL; 100 MG, QD, PO; 100 MG, QHS
     Route: 048
     Dates: start: 20021029, end: 20030116
  3. THALOMID [Suspect]
     Indication: MULTIPLE MYELOMA
     Dosage: 100 MG, DAILY, ORAL; 400 MG, DAILY, ORAL; 200 MG, DAILY, ORAL; QD, ORAL; 100 MG, QD, PO; 100 MG, QHS
     Route: 048
     Dates: start: 20030222, end: 20030405
  4. THALOMID [Suspect]
     Indication: MULTIPLE MYELOMA
     Dosage: 100 MG, DAILY, ORAL; 400 MG, DAILY, ORAL; 200 MG, DAILY, ORAL; QD, ORAL; 100 MG, QD, PO; 100 MG, QHS
     Route: 048
     Dates: start: 20030511, end: 20030706
  5. THALOMID [Suspect]
     Indication: MULTIPLE MYELOMA
     Dosage: 100 MG, DAILY, ORAL; 400 MG, DAILY, ORAL; 200 MG, DAILY, ORAL; QD, ORAL; 100 MG, QD, PO; 100 MG, QHS
     Route: 048
     Dates: start: 20030815, end: 20031009
  6. THALOMID [Suspect]
     Indication: MULTIPLE MYELOMA
     Dosage: 100 MG, DAILY, ORAL; 400 MG, DAILY, ORAL; 200 MG, DAILY, ORAL; QD, ORAL; 100 MG, QD, PO; 100 MG, QHS
     Route: 048
     Dates: start: 20031014, end: 20040708
  7. THALOMID [Suspect]
     Indication: MULTIPLE MYELOMA
     Dosage: 100 MG, DAILY, ORAL; 400 MG, DAILY, ORAL; 200 MG, DAILY, ORAL; QD, ORAL; 100 MG, QD, PO; 100 MG, QHS
     Route: 048
     Dates: start: 20040709, end: 20041127
  8. THALOMID [Suspect]
     Indication: MULTIPLE MYELOMA
     Dosage: 100 MG, DAILY, ORAL; 400 MG, DAILY, ORAL; 200 MG, DAILY, ORAL; QD, ORAL; 100 MG, QD, PO; 100 MG, QHS
     Route: 048
     Dates: start: 20041128
  9. MELPHALAN (MELPHALAN) (INJECTION FOR INFUSION) [Suspect]
     Indication: MULTIPLE MYELOMA
     Dosage: 252 MG, DAILY, INTRAVENOUS
     Route: 042
     Dates: start: 20030720, end: 20030720
  10. DEXAMETHASONE [Suspect]
     Indication: MULTIPLE MYELOMA
     Dosage: 40 MG, ON DAYS 1-4 MONTHLY, ORAL; 40 MG, ON DAYS 1-4, 9-12, 17-20 Q 3 MONTHS, ORAL
     Route: 048
     Dates: start: 20031019
  11. DEXAMETHASONE [Suspect]
     Indication: MULTIPLE MYELOMA
     Dosage: 40 MG, ON DAYS 1-4 MONTHLY, ORAL; 40 MG, ON DAYS 1-4, 9-12, 17-20 Q 3 MONTHS, ORAL
     Route: 048
     Dates: start: 20041128
  12. COLACE (DOCUSATE SODIUM) [Concomitant]
  13. ZOLOFT [Concomitant]
  14. ACYCLOVIR [Concomitant]
  15. PROCRIT [Concomitant]
  16. AREDIA (PAMIDRONATE DISODIUM) (INJECTION FOR INFUSION) [Concomitant]
  17. PENTAMIDINE INHALER (PENTAMIDINE) [Concomitant]
  18. SENOKOT [Concomitant]
  19. LOVENOX [Concomitant]
  20. TEQUIN [Concomitant]
  21. DIFLUCAN [Concomitant]
  22. IMMUNE GLOBULIN INTRAVENOUS (HUMAN) [Concomitant]
  23. FOLIC ACID [Concomitant]
  24. MEGACE [Concomitant]

REACTIONS (12)
  - ASTHMA [None]
  - CONSTIPATION [None]
  - COUGH [None]
  - DEEP VEIN THROMBOSIS [None]
  - DIARRHOEA [None]
  - DIZZINESS [None]
  - FAECALOMA [None]
  - FEBRILE NEUTROPENIA [None]
  - HAEMATURIA [None]
  - NAUSEA [None]
  - PYREXIA [None]
  - STAPHYLOCOCCAL INFECTION [None]
